FAERS Safety Report 8936123 (Version 5)
Quarter: 2013Q1

REPORT INFORMATION
  Report Type: Report from Study
  Country: US (occurrence: US)
  Receive Date: 20121130
  Receipt Date: 20130312
  Transmission Date: 20140127
  Serious: Yes (Hospitalization)
  Sender: FDA-Public Use
  Company Number: US-PFIZER INC-2012293141

PATIENT
  Age: 51 Year
  Sex: Male
  Weight: 82.1 kg

DRUGS (17)
  1. PF-04136309 [Suspect]
     Indication: PANCREATIC CARCINOMA
     Dosage: 500 MG, SINGLE
     Route: 048
     Dates: start: 20121115, end: 20121115
  2. PF-04136309 [Suspect]
     Dosage: 500 MG, 2X/DAY
     Route: 048
     Dates: start: 20121116, end: 20121120
  3. OXALIPLATIN [Suspect]
     Indication: PANCREATIC CARCINOMA
     Dosage: 167 MG, EVERY 2 WEEKS
     Route: 042
     Dates: start: 20121115, end: 20121115
  4. FLUOROURACIL [Suspect]
     Indication: PANCREATIC CARCINOMA
     Dosage: 784 MG, EVERY 2 WEEKS
     Route: 040
     Dates: start: 20121115, end: 20121115
  5. FLUOROURACIL [Suspect]
     Dosage: 4704 MG, CIVI, EVERY 2 WEEKS
     Route: 042
     Dates: start: 20121115, end: 20121117
  6. IRINOTECAN HCL [Suspect]
     Indication: PANCREATIC CARCINOMA
     Dosage: 353 MG, EVERY 2 WEEKS
     Route: 042
     Dates: start: 20121115, end: 20121115
  7. LEUCOVORIN [Suspect]
     Indication: PANCREATIC CARCINOMA
     Dosage: 784 MG, EVERY 2 WEEKS
     Route: 042
     Dates: start: 20121115, end: 20121115
  8. COUMADIN [Concomitant]
     Indication: CEREBROVASCULAR ACCIDENT
     Dosage: UNK
     Dates: start: 2003
  9. CYCLOBENZAPRINE [Concomitant]
     Dosage: UNK
  10. METFORMIN [Concomitant]
     Dosage: UNK
  11. MIRALAX [Concomitant]
     Dosage: UNK
  12. NICOTINE PATCH [Concomitant]
     Dosage: UNK
  13. OXYCODONE [Concomitant]
     Dosage: UNK
  14. PROCHLORPERAZINE [Concomitant]
     Dosage: UNK
  15. COLACE [Concomitant]
     Dosage: UNK
  16. INSULIN [Concomitant]
     Dosage: UNK
  17. PERCOCET [Concomitant]
     Dosage: UNK

REACTIONS (2)
  - Diarrhoea [Recovered/Resolved]
  - Abdominal pain [Recovered/Resolved]
